FAERS Safety Report 20310748 (Version 2)
Quarter: 2022Q4

REPORT INFORMATION
  Report Type: Spontaneous
  Country: CA (occurrence: CA)
  Receive Date: 20220107
  Receipt Date: 20221018
  Transmission Date: 20230113
  Serious: Yes (Death)
  Sender: FDA-Public Use
  Company Number: None

PATIENT
  Sex: Female

DRUGS (7)
  1. CITALOPRAM HYDROBROMIDE [Interacting]
     Active Substance: CITALOPRAM HYDROBROMIDE
     Indication: Antidepressant therapy
     Dosage: 40 MG
  2. LAMICTAL [Interacting]
     Active Substance: LAMOTRIGINE
     Indication: Seizure prophylaxis
     Dosage: 100 MG, BID
  3. RESTORIL [Interacting]
     Active Substance: TEMAZEPAM
     Indication: Sleep disorder
     Dosage: 45 MG, QD
  4. RISPERDAL [Interacting]
     Active Substance: RISPERIDONE
     Indication: Psychiatric disorder prophylaxis
     Dosage: 3 MG, BID, 2MG IN THE MORNING AND 4MG AT BEDTIME
  5. SEROQUEL [Interacting]
     Active Substance: QUETIAPINE FUMARATE
     Indication: Psychiatric disorder prophylaxis
     Dosage: 25 MG, QD
  6. COGENTIN [Concomitant]
     Active Substance: BENZTROPINE MESYLATE
     Dosage: 2 MG, QHS
     Route: 065
  7. SYNTHROID [Concomitant]
     Active Substance: LEVOTHYROXINE SODIUM
     Dosage: 100 MG, BID
     Route: 065

REACTIONS (15)
  - Accidental death [Fatal]
  - Antidepressant drug level above therapeutic [Fatal]
  - Malaise [Fatal]
  - Mental impairment [Fatal]
  - Pneumonia [Fatal]
  - Postmortem blood drug level [Fatal]
  - Respiratory depression [Fatal]
  - Food interaction [Fatal]
  - Drug interaction [Fatal]
  - Potentiating drug interaction [Fatal]
  - Ventricular arrhythmia [Fatal]
  - Somnolence [Fatal]
  - Confusional state [Fatal]
  - Electrocardiogram QT prolonged [Fatal]
  - Labelled drug-drug interaction issue [Fatal]

NARRATIVE: CASE EVENT DATE: 20190101
